FAERS Safety Report 8176560 (Version 2)
Quarter: 2015Q1

REPORT INFORMATION
  Report Type: Spontaneous
  Country: US (occurrence: US)
  Receive Date: 20111012
  Receipt Date: 20150126
  Transmission Date: 20150721
  Serious: No
  Sender: FDA-Public Use
  Company Number: US-BIOGENIDEC-2011BI038193

PATIENT
  Age: 53 Year
  Sex: Male

DRUGS (1)
  1. AVONEX [Suspect]
     Active Substance: INTERFERON BETA-1A
     Indication: MULTIPLE SCLEROSIS
     Route: 030
     Dates: start: 20110804

REACTIONS (7)
  - Influenza [Not Recovered/Not Resolved]
  - Drug dose omission [Not Recovered/Not Resolved]
  - Insomnia [Not Recovered/Not Resolved]
  - Headache [Not Recovered/Not Resolved]
  - Influenza like illness [Not Recovered/Not Resolved]
  - Nasopharyngitis [Not Recovered/Not Resolved]
  - Pain in extremity [Not Recovered/Not Resolved]

NARRATIVE: CASE EVENT DATE: 2011
